FAERS Safety Report 7309911-0 (Version None)
Quarter: 2011Q1

REPORT INFORMATION
  Report Type: 
  Country: None (occurrence: None)
  Receive Date: 20110224
  Receipt Date: 20110214
  Transmission Date: 20110831
  Serious: Yes (Hospitalization, Other)
  Sender: FDA-Public Use
  Company Number: US-TEVA-261171USA

PATIENT
  Sex: Female

DRUGS (10)
  1. SIMVASTATIN [Concomitant]
     Dosage: AT BEDTIME
     Route: 048
  2. LACTULOSE [Concomitant]
     Dosage: 10GM/15ML, IN MORNING + BEDTIME
     Route: 048
  3. OMEPRAZOLE DR [Concomitant]
     Dosage: EVERY MORNING
     Route: 048
  4. CLOZAPINE [Suspect]
     Route: 048
  5. THEREMS-M [Concomitant]
     Route: 048
  6. CLONAZEPAM [Concomitant]
     Route: 048
  7. TRIHEXYPHENIDYL HCL [Concomitant]
     Route: 048
  8. LITHIUM [Suspect]
     Dosage: AM + BEDTIME
     Route: 048
  9. RISPERDONE [Concomitant]
     Dosage: AM + BEDTIME
     Route: 048
  10. QUETIAPINE [Concomitant]
     Route: 048

REACTIONS (3)
  - WHITE BLOOD CELL COUNT DECREASED [None]
  - TOXICITY TO VARIOUS AGENTS [None]
  - RENAL FAILURE [None]
